FAERS Safety Report 15307265 (Version 1)
Quarter: 2018Q3

REPORT INFORMATION
  Report Type: Spontaneous
  Country: GB (occurrence: GB)
  Receive Date: 20180822
  Receipt Date: 20180822
  Transmission Date: 20181010
  Serious: Yes (Hospitalization, Other)
  Sender: FDA-Public Use
  Company Number: GB-PFIZER INC-2018332053

PATIENT
  Age: 70 Year
  Sex: Male

DRUGS (4)
  1. DENOSUMAB [Concomitant]
     Active Substance: DENOSUMAB
     Indication: METASTASES TO BONE
     Dosage: 1 DF, UNKNOWN
     Route: 065
  2. FILGRASTIM [Concomitant]
     Active Substance: FILGRASTIM
     Dosage: 1 DF, UNKNOWN
     Route: 065
  3. DOXORUBICIN [Suspect]
     Active Substance: DOXORUBICIN
     Dosage: 1 DF, UNKNOWN
     Route: 065
  4. LARTRUVO [Suspect]
     Active Substance: OLARATUMAB
     Dosage: 1 DF, UNKNOWN
     Route: 065

REACTIONS (3)
  - Febrile neutropenia [Unknown]
  - Neutropenia [Unknown]
  - Hiccups [Recovered/Resolved]
